FAERS Safety Report 9214511 (Version 2)
Quarter: 2013Q4

REPORT INFORMATION
  Report Type: Spontaneous
  Country: US (occurrence: US)
  Receive Date: 20130405
  Receipt Date: 20131211
  Transmission Date: 20140711
  Serious: Yes (Other)
  Sender: FDA-Public Use
  Company Number: US-BAYER-2013-040674

PATIENT
  Sex: Female

DRUGS (3)
  1. YAZ [Suspect]
     Dosage: UNK
     Dates: start: 200906
  2. YASMIN [Suspect]
     Dosage: UNK
     Dates: start: 200906
  3. PRILOSEC [Concomitant]
     Dosage: UNK
     Dates: start: 20090831

REACTIONS (6)
  - Biliary dyskinesia [None]
  - Cholecystitis chronic [None]
  - Gallbladder disorder [None]
  - Injury [None]
  - Pain [None]
  - Emotional distress [None]
